FAERS Safety Report 6784981-7 (Version None)
Quarter: 2010Q2

REPORT INFORMATION
  Report Type: 
  Country: None (occurrence: None)
  Receive Date: 20100618
  Receipt Date: 20100608
  Transmission Date: 20101027
  Serious: Yes (Death, Life-Threatening, Hospitalization)
  Sender: FDA-Public Use
  Company Number: 2009-04598

PATIENT
  Age: 67 Year
  Sex: Male
  Weight: 69.2 kg

DRUGS (5)
  1. VELCADE [Suspect]
     Indication: MULTIPLE MYELOMA
     Dosage: 2.2 MG, CYCLIC, INTRAVENOUS; 1.7 MG, CYCLIC, INTRAVENOUS
     Route: 042
     Dates: start: 20091027, end: 20091027
  2. VELCADE [Suspect]
     Indication: MULTIPLE MYELOMA
     Dosage: 2.2 MG, CYCLIC, INTRAVENOUS; 1.7 MG, CYCLIC, INTRAVENOUS
     Route: 042
     Dates: start: 20090928
  3. DOXORUBICIN HCL [Suspect]
     Indication: MULTIPLE MYELOMA
     Dosage: 60 MG, CYCLIC, INTRAVENOUS; 40 MG, INTRAVENOUS
     Route: 042
     Dates: start: 20091024, end: 20091024
  4. DOXORUBICIN HCL [Suspect]
     Indication: MULTIPLE MYELOMA
     Dosage: 60 MG, CYCLIC, INTRAVENOUS; 40 MG, INTRAVENOUS
     Route: 042
     Dates: start: 20090928
  5. DEXAMETHASONE TAB [Suspect]
     Indication: MULTIPLE MYELOMA
     Dosage: 40 MG, ORAL
     Route: 048
     Dates: start: 20090928, end: 20091023

REACTIONS (8)
  - CONDITION AGGRAVATED [None]
  - DECREASED APPETITE [None]
  - FATIGUE [None]
  - H1N1 INFLUENZA [None]
  - HYPONATRAEMIA [None]
  - ORAL CANDIDIASIS [None]
  - PNEUMONIA [None]
  - REFUSAL OF TREATMENT BY PATIENT [None]
